FAERS Safety Report 7111964-X (Version None)
Quarter: 2010Q4

REPORT INFORMATION
  Report Type: 
  Country: None (occurrence: None)
  Receive Date: 20101119
  Receipt Date: 20101108
  Transmission Date: 20110411
  Serious: Yes (Disabling, Other)
  Sender: FDA-Public Use
  Company Number: US-ELI_LILLY_AND_COMPANY-US201009000696

PATIENT
  Sex: Male

DRUGS (5)
  1. ALIMTA [Suspect]
     Indication: LUNG NEOPLASM MALIGNANT
     Dosage: 1000 MG, OTHER
     Route: 065
     Dates: end: 20100526
  2. ALOXI [Concomitant]
  3. CARBOPLATIN [Concomitant]
  4. VITAMIN B-12 [Concomitant]
  5. FOLIC ACID [Concomitant]

REACTIONS (1)
  - METASTASES TO MENINGES [None]
